FAERS Safety Report 9297935 (Version 4)
Quarter: 2013Q3

REPORT INFORMATION
  Report Type: Spontaneous
  Country: US (occurrence: US)
  Receive Date: 20130520
  Receipt Date: 20130911
  Transmission Date: 20140515
  Serious: Yes (Other)
  Sender: FDA-Public Use
  Company Number: US-PFIZER INC-2013154196

PATIENT
  Age: 28 Year
  Sex: Female

DRUGS (5)
  1. ZIPRASIDONE HCL [Suspect]
     Dosage: UNK
  2. FLUPHENAZINE [Concomitant]
     Dosage: 20 MG/DAY
  3. RISPERDAL [Concomitant]
     Dosage: 9 MG/DAY
  4. BENZTROPINE MESYLATE [Concomitant]
     Dosage: 6 MG/DAY
  5. PROPRANOLOL [Concomitant]
     Dosage: 40 MG/DAY

REACTIONS (6)
  - Suicidal ideation [Unknown]
  - Speech disorder [Unknown]
  - Logorrhoea [Unknown]
  - Condition aggravated [Unknown]
  - Product quality issue [Unknown]
  - Drug ineffective [Unknown]
